FAERS Safety Report 15933953 (Version 1)
Quarter: 2019Q1

REPORT INFORMATION
  Report Type: Spontaneous
  Country: US (occurrence: US)
  Receive Date: 20190207
  Receipt Date: 20190207
  Transmission Date: 20190417
  Serious: No
  Sender: FDA-Public Use
  Company Number: US-SA-2019SA032284

PATIENT
  Age: 67 Year
  Sex: Female

DRUGS (26)
  1. PERCOCET [Concomitant]
     Active Substance: ACETAMINOPHEN\OXYCODONE HYDROCHLORIDE
     Dosage: UNK
  2. CARDIZEM LA [Concomitant]
     Active Substance: DILTIAZEM HYDROCHLORIDE
     Dosage: UNK
  3. ZINC 220 [Concomitant]
     Dosage: UNK
  4. JANUVIA [Concomitant]
     Active Substance: SITAGLIPTIN PHOSPHATE
     Dosage: UNK
  5. MAG [MAGNESIUM CHLORIDE] [Concomitant]
     Dosage: UNK
  6. METFORMIN [Concomitant]
     Active Substance: METFORMIN HYDROCHLORIDE
     Dosage: UNK
  7. FISH OIL [Concomitant]
     Active Substance: FISH OIL
     Dosage: UNK
  8. EPIPEN [Concomitant]
     Active Substance: EPINEPHRINE
     Dosage: UNK
  9. SYMBICORT [Concomitant]
     Active Substance: BUDESONIDE\FORMOTEROL FUMARATE DIHYDRATE
     Dosage: UNK
  10. MODAFINIL. [Concomitant]
     Active Substance: MODAFINIL
     Dosage: UNK
  11. B-COMPLEX [VITAMIN B COMPLEX] [Concomitant]
     Dosage: UNK
  12. CENTRUM PLUS [Concomitant]
     Active Substance: VITAMINS
     Dosage: UNK
  13. ESCITALOPRAM [Concomitant]
     Active Substance: ESCITALOPRAM OXALATE
     Dosage: UNK
  14. ATORVASTATIN [Concomitant]
     Active Substance: ATORVASTATIN
     Dosage: UNK
  15. CALCIUM [Concomitant]
     Active Substance: CALCIUM
     Dosage: UNK
  16. LOSARTAN AND HYDROCHLOROTHIAZIDE [Concomitant]
     Active Substance: HYDROCHLOROTHIAZIDE\LOSARTAN POTASSIUM
     Dosage: UNK
  17. SINGULAIR [Concomitant]
     Active Substance: MONTELUKAST SODIUM
     Dosage: UNK
  18. CLARITIN [Concomitant]
     Active Substance: LORATADINE
     Dosage: UNK
  19. DICLOFENAC [Concomitant]
     Active Substance: DICLOFENAC
     Dosage: UNK
  20. DUPIXENT [Suspect]
     Active Substance: DUPILUMAB
     Indication: NEURODERMATITIS
     Dosage: 300 MG, QOW
     Route: 058
     Dates: start: 20181121
  21. MIRALAX [Concomitant]
     Active Substance: POLYETHYLENE GLYCOL 3350
     Dosage: UNK
  22. DEXILANT [Concomitant]
     Active Substance: DEXLANSOPRAZOLE
     Dosage: UNK
  23. METOPROLOL. [Concomitant]
     Active Substance: METOPROLOL
     Dosage: UNK
  24. BUPROPION. [Concomitant]
     Active Substance: BUPROPION
     Dosage: UNK
  25. PROAIR [SALBUTAMOL SULFATE] [Concomitant]
     Dosage: UNK
  26. HCTZ [Concomitant]
     Active Substance: HYDROCHLOROTHIAZIDE
     Dosage: UNK

REACTIONS (1)
  - Oral mucosal blistering [Not Recovered/Not Resolved]
